FAERS Safety Report 7602562 (Version 4)
Quarter: 2013Q4

REPORT INFORMATION
  Report Type: Spontaneous
  Country: US (occurrence: US)
  Receive Date: 20100923
  Receipt Date: 20131127
  Transmission Date: 20140711
  Serious: Yes (Other)
  Sender: FDA-Public Use
  Company Number: US-BAYER-201034263NA

PATIENT
  Age: 24 Year
  Sex: Female
  Weight: 81.63 kg

DRUGS (4)
  1. YAZ [Suspect]
     Route: 048
  2. YASMIN [Suspect]
     Dosage: UNK UNK, QD
     Route: 048
     Dates: start: 200604, end: 201001
  3. PRENATAL VITAMINS [Concomitant]
     Dosage: 1 DAILY
     Route: 048
     Dates: start: 20080125
  4. HYDROCODONE/ACETAMINOPHEN [Concomitant]
     Dosage: 7.5/500, 1-2 EVERY 4-6 HOURS
     Route: 048
     Dates: start: 20080125

REACTIONS (5)
  - Cholecystectomy [None]
  - Cholecystitis chronic [None]
  - Nausea [None]
  - Abdominal pain upper [None]
  - Vomiting [None]
